FAERS Safety Report 9465324 (Version 1)
Quarter: 2013Q3

REPORT INFORMATION
  Report Type: Spontaneous
  Country: CA (occurrence: CA)
  Receive Date: 20130820
  Receipt Date: 20130820
  Transmission Date: 20140515
  Serious: Yes (Hospitalization, Other)
  Sender: FDA-Public Use
  Company Number: CA-ROCHE-1264061

PATIENT
  Age: 53 Year
  Sex: Male

DRUGS (10)
  1. MYCOPHENOLATE MOFETIL [Suspect]
     Indication: PRODUCT USED FOR UNKNOWN INDICATION
     Route: 065
  2. PROGRAF [Suspect]
     Indication: PRODUCT USED FOR UNKNOWN INDICATION
     Route: 065
  3. ASPIRIN [Concomitant]
     Route: 065
  4. DILTIAZEM [Concomitant]
     Route: 065
  5. FUROSEMIDE [Concomitant]
     Route: 065
  6. HUMALOG [Concomitant]
     Route: 065
  7. LANTUS [Concomitant]
     Route: 065
  8. METFORMIN [Concomitant]
     Route: 065
  9. PREDNISONE [Concomitant]
     Route: 065
  10. ALLOPURINOL [Concomitant]
     Route: 065

REACTIONS (5)
  - Amnesia [Not Recovered/Not Resolved]
  - Delusion [Not Recovered/Not Resolved]
  - Diabetes mellitus [Not Recovered/Not Resolved]
  - Dysstasia [Not Recovered/Not Resolved]
  - Encephalitis viral [Not Recovered/Not Resolved]
